FAERS Safety Report 10645648 (Version 1)
Quarter: 2014Q4

REPORT INFORMATION
  Report Type: Spontaneous
  Country: US (occurrence: None)
  Receive Date: 20141202
  Receipt Date: 20141202
  Transmission Date: 20150529
  Serious: No
  Sender: FDA-Public Use
  Company Number: 2013TUS002101

PATIENT
  Age: 55 Year
  Sex: Male

DRUGS (2)
  1. OSENI [Suspect]
     Active Substance: ALOGLIPTIN BENZOATE\PIOGLITAZONE HYDROCHLORIDE
     Indication: DIABETES MELLITUS
     Route: 048
     Dates: start: 20130930
  2. INVOKANA [Suspect]
     Active Substance: CANAGLIFLOZIN

REACTIONS (2)
  - Breast pain [None]
  - Skin irritation [None]

NARRATIVE: CASE EVENT DATE: 20131031
